FAERS Safety Report 12341411 (Version 1)
Quarter: 2016Q2

REPORT INFORMATION
  Report Type: Spontaneous
  Country: FR (occurrence: FR)
  Receive Date: 20160506
  Receipt Date: 20160506
  Transmission Date: 20160815
  Serious: Yes (Hospitalization)
  Sender: FDA-Public Use
  Company Number: FR-PFIZER INC-2016237669

PATIENT
  Age: 78 Year
  Sex: Female

DRUGS (16)
  1. HYPERIUM [Concomitant]
     Active Substance: RILMENIDINE PHOSPHATE
     Dosage: UNK
     Dates: end: 20150905
  2. AMLOR [Suspect]
     Active Substance: AMLODIPINE BESYLATE
     Indication: HYPERTENSION
     Dosage: UNK
     Route: 048
     Dates: start: 20150905, end: 20150923
  3. INEXIUM /01479302/ [Concomitant]
     Active Substance: ESOMEPRAZOLE MAGNESIUM
  4. CACIT VITAMIN D3 [Concomitant]
     Active Substance: CALCIUM CARBONATE\CHOLECALCIFEROL
  5. MONURIL [Concomitant]
     Active Substance: FOSFOMYCIN SODIUM
     Indication: CYSTITIS
     Dosage: UNK UNK, SINGLE
     Route: 048
     Dates: start: 20150912, end: 20150912
  6. GAVISCON /01279001/ [Concomitant]
  7. RAMIPRIL. [Concomitant]
     Active Substance: RAMIPRIL
     Dosage: UNK
     Dates: end: 20150905
  8. CORTANCYL [Concomitant]
     Active Substance: PREDNISONE
  9. CELLUVISC /00007002/ [Concomitant]
  10. IKERVIS [Concomitant]
  11. METEOXANE /08328901/ [Concomitant]
     Active Substance: DIMETHICONE\PHLOROGLUCINOL
     Dosage: UNK
     Route: 048
     Dates: start: 20150912, end: 20150913
  12. DIFFU K [Concomitant]
     Active Substance: POTASSIUM CHLORIDE
  13. VITAMIN A /00056001/ [Concomitant]
     Active Substance: RETINOL
  14. SPASFON /00765801/ [Concomitant]
     Active Substance: PHLOROGLUCINOL\1,3,5-TRIMETHOXYBENZENE
     Dosage: UNK
     Route: 048
     Dates: start: 20150912, end: 20150913
  15. BIPRETERAX /06377001/ [Suspect]
     Active Substance: INDAPAMIDE\PERINDOPRIL
     Indication: HYPERTENSION
     Dosage: UNK
     Route: 048
     Dates: start: 20150905, end: 20150923
  16. SMECTA /07327601/ [Concomitant]
     Dosage: UNK
     Route: 048
     Dates: start: 20150912, end: 20150913

REACTIONS (1)
  - Drug reaction with eosinophilia and systemic symptoms [Recovered/Resolved]

NARRATIVE: CASE EVENT DATE: 20150918
